FAERS Safety Report 23719160 (Version 1)
Quarter: 2024Q2

REPORT INFORMATION
  Report Type: Spontaneous
  Country: US (occurrence: US)
  Receive Date: 20240408
  Receipt Date: 20240408
  Transmission Date: 20240716
  Serious: Yes (Hospitalization, Other)
  Sender: FDA-Public Use
  Company Number: US-VER-202400146

PATIENT
  Sex: Male

DRUGS (3)
  1. XYOSTED [Suspect]
     Active Substance: TESTOSTERONE ENANTHATE
     Route: 065
  2. TLANDO [Suspect]
     Active Substance: TESTOSTERONE UNDECANOATE
     Indication: Hypogonadism
     Dosage: 100/0.5 MILLIGRAM PER MILLILITRE
     Route: 065
  3. TESTOSTERONE UNDECANOATE [Concomitant]
     Active Substance: TESTOSTERONE UNDECANOATE
     Indication: Product used for unknown indication
     Dosage: 112.5 MILLIGRAM
     Route: 065

REACTIONS (2)
  - Calcium deficiency [Unknown]
  - Rhabdomyolysis [Unknown]
